FAERS Safety Report 14480623 (Version 3)
Quarter: 2018Q4

REPORT INFORMATION
  Report Type: Report from Study
  Country: CL (occurrence: CL)
  Receive Date: 20180202
  Receipt Date: 20181220
  Transmission Date: 20190204
  Serious: Yes (Life-Threatening, Hospitalization, Other)
  Sender: FDA-Public Use
  Company Number: PHHY2018CL015183

PATIENT
  Age: 13 Year
  Sex: Female

DRUGS (2)
  1. OMNITROPE [Suspect]
     Active Substance: SOMATROPIN
     Indication: PROPHYLAXIS
     Dosage: 4.2 IU, QD, (10MG)
     Route: 058
     Dates: start: 20170125
  2. OMNITROPE [Suspect]
     Active Substance: SOMATROPIN
     Indication: GROWTH HORMONE DEFICIENCY
     Dosage: 4.2 IU, QD, (10MG)
     Route: 058
     Dates: start: 20160301

REACTIONS (12)
  - Injection site erythema [Unknown]
  - Heart rate increased [Not Recovered/Not Resolved]
  - Ejection fraction decreased [Unknown]
  - Heart disease congenital [Unknown]
  - Condition aggravated [Unknown]
  - Incorrect dose administered [Unknown]
  - Product use in unapproved indication [Unknown]
  - Device failure [Unknown]
  - Growth hormone deficiency [Unknown]
  - Asthenia [Unknown]
  - Cardiac disorder [Not Recovered/Not Resolved]
  - Cardiac output increased [Not Recovered/Not Resolved]

NARRATIVE: CASE EVENT DATE: 20170125
